FAERS Safety Report 7361499-4 (Version None)
Quarter: 2011Q1

REPORT INFORMATION
  Report Type: 
  Country: None (occurrence: None)
  Receive Date: 20110315
  Receipt Date: 20110315
  Transmission Date: 20110831
  Serious: Yes (Life-Threatening)
  Sender: FDA-Public Use
  Company Number: None

PATIENT
  Age: 28 Year
  Sex: Female
  Weight: 62.1428 kg

DRUGS (1)
  1. CYTOTEC [Suspect]
     Indication: LABOUR INDUCTION
     Dosage: 1/4 DOSE TWICE VAG
     Route: 067
     Dates: start: 20080611, end: 20080611

REACTIONS (3)
  - DRUG EXPOSURE DURING PREGNANCY [None]
  - VAGINAL HAEMORRHAGE [None]
  - PRODUCT QUALITY ISSUE [None]
